FAERS Safety Report 10055858 (Version 1)
Quarter: 2014Q2

REPORT INFORMATION
  Report Type: Report from Study
  Country: US (occurrence: US)
  Receive Date: 20140403
  Receipt Date: 20140403
  Transmission Date: 20141212
  Serious: Yes (Hospitalization, Other)
  Sender: FDA-Public Use
  Company Number: US-JNJFOC-20140316988

PATIENT
  Sex: Male

DRUGS (5)
  1. SIMPONI [Suspect]
     Indication: ANKYLOSING SPONDYLITIS
     Route: 058
  2. MORPHINE [Suspect]
     Indication: KNEE ARTHROPLASTY
     Route: 065
     Dates: start: 2009, end: 2009
  3. PLAVIX [Concomitant]
     Indication: ANTICOAGULANT THERAPY
     Route: 065
     Dates: start: 201403
  4. BABY ASPIRIN [Concomitant]
     Indication: ANTICOAGULANT THERAPY
     Route: 048
     Dates: start: 201403
  5. XARELTO [Concomitant]
     Indication: ANTICOAGULANT THERAPY
     Route: 048

REACTIONS (5)
  - Dyspnoea [Recovered/Resolved]
  - Knee arthroplasty [Unknown]
  - Coronary artery occlusion [Recovered/Resolved]
  - Drug dose omission [Not Recovered/Not Resolved]
  - Urticaria [Recovered/Resolved]
